FAERS Safety Report 23140263 (Version 1)
Quarter: 2023Q4

REPORT INFORMATION
  Report Type: Report from Study
  Country: GB (occurrence: GB)
  Receive Date: 20231102
  Receipt Date: 20231102
  Transmission Date: 20240110
  Serious: Yes (Other)
  Sender: FDA-Public Use
  Company Number: GB-SANDOZ-SDZ2023GB014732

PATIENT
  Sex: Male

DRUGS (1)
  1. HYRIMOZ [Suspect]
     Active Substance: ADALIMUMAB-ADAZ
     Indication: Crohn^s disease
     Dosage: 40 MG, Q2W (EOW)
     Route: 058
     Dates: start: 20230807

REACTIONS (14)
  - Haematochezia [Unknown]
  - Malaise [Recovered/Resolved]
  - Depressed mood [Unknown]
  - Fatigue [Unknown]
  - Dizziness [Unknown]
  - Dyspnoea [Unknown]
  - Balance disorder [Unknown]
  - Palpitations [Unknown]
  - Frequent bowel movements [Unknown]
  - Gait disturbance [Unknown]
  - Impaired driving ability [Unknown]
  - Somnolence [Unknown]
  - Flatulence [Unknown]
  - Drug effect less than expected [Unknown]
